FAERS Safety Report 22635008 (Version 1)
Quarter: 2023Q2

REPORT INFORMATION
  Report Type: Spontaneous
  Country: US (occurrence: None)
  Receive Date: 20230622
  Receipt Date: 20230622
  Transmission Date: 20230721
  Serious: Yes (Disabling)
  Sender: FDA-Public Use
  Company Number: None

PATIENT
  Age: 40 Year
  Sex: Female
  Weight: 63 kg

DRUGS (3)
  1. CIPROFLOXACIN [Suspect]
     Active Substance: CIPROFLOXACIN
     Indication: Pneumonia
     Dosage: OTHER QUANTITY : 1 TABLET(S);?FREQUENCY : TWICE A DAY;?
     Route: 048
     Dates: start: 20230531, end: 20230610
  2. LEVOTHYROXINE [Concomitant]
     Active Substance: LEVOTHYROXINE
  3. Every Woman?^s One Daily Multivitamin [Concomitant]

REACTIONS (8)
  - Tendon pain [None]
  - Gait disturbance [None]
  - Musculoskeletal stiffness [None]
  - Pain in extremity [None]
  - Limb discomfort [None]
  - Tendon discomfort [None]
  - Joint noise [None]
  - Back pain [None]

NARRATIVE: CASE EVENT DATE: 20230618
